FAERS Safety Report 9343851 (Version 2)
Quarter: 2013Q3

REPORT INFORMATION
  Report Type: Spontaneous
  Country: US (occurrence: US)
  Receive Date: 20130612
  Receipt Date: 20130704
  Transmission Date: 20140515
  Serious: No
  Sender: FDA-Public Use
  Company Number: US-PFIZER INC-2013175829

PATIENT
  Age: 55 Year
  Sex: Male
  Weight: 107 kg

DRUGS (10)
  1. LYRICA [Suspect]
     Indication: DIABETIC NEUROPATHY
     Dosage: 50 MG, 3X/DAY
     Route: 048
     Dates: start: 20130603, end: 20130613
  2. METOPROLOL [Concomitant]
     Indication: HYPERTENSION
     Dosage: UNK
  3. METFORMIN [Concomitant]
     Indication: DIABETES MELLITUS
     Dosage: UNK
  4. LISINOPRIL [Concomitant]
     Dosage: UNK
  5. GLIMEPIRIDE [Concomitant]
     Dosage: UNK
  6. ASPIRIN [Concomitant]
     Dosage: 325 MG, 1X/DAY
  7. CELEXA [Concomitant]
     Dosage: UNK
  8. XANAX [Concomitant]
     Dosage: UNK, 2X/DAY
  9. NOVOLOG MIX 70/30 [Concomitant]
     Dosage: 100 UNITS, UNK
  10. LANTUS [Concomitant]
     Dosage: 50 MG, 1X/DAY

REACTIONS (2)
  - Joint swelling [Unknown]
  - Local swelling [Unknown]
